FAERS Safety Report 21608991 (Version 2)
Quarter: 2022Q4

REPORT INFORMATION
  Report Type: Spontaneous
  Country: US (occurrence: US)
  Receive Date: 20221117
  Receipt Date: 20221209
  Transmission Date: 20230113
  Serious: Yes (Hospitalization)
  Sender: FDA-Public Use
  Company Number: US-TEVA-2022-US-2825309

PATIENT
  Age: 61 Year
  Sex: Female

DRUGS (1)
  1. ALPRAZOLAM [Suspect]
     Active Substance: ALPRAZOLAM
     Indication: Anxiety
     Dosage: 3 TO 4 MG DAILY; THE PATIENT HAD BEEN PRESCRIBED 2 MG OF ALPRAZOLAM DAILY STARTING 21 MONTHS PRIOR T
     Route: 048

REACTIONS (6)
  - Agitation [Recovered/Resolved]
  - Restlessness [Recovered/Resolved]
  - Anxiety [Recovered/Resolved]
  - Drug withdrawal syndrome [Recovered/Resolved]
  - Drug use disorder [Recovered/Resolved]
  - Drug dependence [Recovered/Resolved]
